FAERS Safety Report 19912706 (Version 3)
Quarter: 2021Q4

REPORT INFORMATION
  Report Type: Spontaneous
  Country: US (occurrence: US)
  Receive Date: 20211004
  Receipt Date: 20211013
  Transmission Date: 20220304
  Serious: No
  Sender: FDA-Public Use
  Company Number: US-AIMMUNE THERAPEUTICS, INC.-2021AIMT00590

PATIENT

DRUGS (3)
  1. PALFORZIA [Suspect]
     Active Substance: PEANUT
     Indication: Food allergy
     Dosage: 0.5 MG, ONCE, IDE
     Route: 048
     Dates: start: 20210927
  2. PALFORZIA [Suspect]
     Active Substance: PEANUT
     Dosage: 1 MG, ONCE, IDE, PRIOR FIRST EPISODE OF EVENTS
     Route: 048
     Dates: start: 20210927, end: 20210927
  3. PALFORZIA [Suspect]
     Active Substance: PEANUT
     Dosage: 3 MG, ONCE, IDE, PRIOR SECOND EPISODE OF EVENTS
     Route: 048
     Dates: start: 20210927, end: 20210927

REACTIONS (2)
  - Oral pruritus [Recovered/Resolved]
  - Throat irritation [Recovered/Resolved]

NARRATIVE: CASE EVENT DATE: 20210927
